FAERS Safety Report 8738663 (Version 2)
Quarter: 2012Q4

REPORT INFORMATION
  Report Type: 
  Country: US (occurrence: US)
  Receive Date: 20120823
  Receipt Date: 20120904
  Transmission Date: 20130627
  Serious: Yes (Other)
  Sender: FDA-Public Use
  Company Number: US-US-EMD SERONO, INC.-7150820

PATIENT
  Age: 43 Year
  Sex: Female
  Weight: 70 kg

DRUGS (5)
  1. REBIF [Suspect]
     Indication: MULTIPLE SCLEROSIS
     Route: 058
     Dates: start: 20120301
  2. REBIF [Suspect]
     Route: 058
  3. REBIF [Suspect]
     Route: 058
     Dates: start: 201208
  4. ADVIL [Suspect]
     Indication: INFLUENZA LIKE ILLNESS
     Dates: start: 20120301, end: 20120519
  5. HYDROCODONE [Concomitant]
     Indication: PREMEDICATION

REACTIONS (7)
  - Gastric perforation [Recovered/Resolved]
  - Haematemesis [Recovered/Resolved]
  - Constipation [Unknown]
  - Burning sensation [Not Recovered/Not Resolved]
  - Asthenia [Unknown]
  - Hypoaesthesia [Not Recovered/Not Resolved]
  - Pain in extremity [Not Recovered/Not Resolved]
